FAERS Safety Report 23264351 (Version 1)
Quarter: 2023Q4

REPORT INFORMATION
  Report Type: Report from Study
  Country: US (occurrence: US)
  Receive Date: 20231205
  Receipt Date: 20231205
  Transmission Date: 20240110
  Serious: Yes (Other)
  Sender: FDA-Public Use
  Company Number: US-RADIUS HEALTH, INC.-2023US003164

PATIENT
  Age: 76 Year
  Sex: Female

DRUGS (3)
  1. TYMLOS [Suspect]
     Active Substance: ABALOPARATIDE
     Indication: Osteoporosis
     Dosage: 80 MICROGRAM, QD
     Route: 058
     Dates: start: 20230613
  2. TYMLOS [Suspect]
     Active Substance: ABALOPARATIDE
     Dosage: 2 CLICKS, QHS
     Route: 058
     Dates: start: 20230614, end: 20231129
  3. TYMLOS [Suspect]
     Active Substance: ABALOPARATIDE
     Dosage: 6 CLICKS, QD
     Route: 058
     Dates: end: 20231129

REACTIONS (14)
  - Loss of consciousness [Recovered/Resolved]
  - Feeling abnormal [Not Recovered/Not Resolved]
  - Sensory disturbance [Recovering/Resolving]
  - Discomfort [Not Recovered/Not Resolved]
  - Concussion [Recovering/Resolving]
  - Fall [Recovered/Resolved]
  - Sleep disorder [Not Recovered/Not Resolved]
  - Dizziness [Not Recovered/Not Resolved]
  - Headache [Not Recovered/Not Resolved]
  - Nausea [Recovering/Resolving]
  - Heart rate increased [Not Recovered/Not Resolved]
  - Palpitations [Not Recovered/Not Resolved]
  - Intentional product misuse [Unknown]
  - Product quality issue [Unknown]

NARRATIVE: CASE EVENT DATE: 20230601
